FAERS Safety Report 9995523 (Version 1)
Quarter: 2014Q1

REPORT INFORMATION
  Report Type: Spontaneous
  Country: IT (occurrence: None)
  Receive Date: 20140307
  Receipt Date: 20140307
  Transmission Date: 20141002
  Serious: Yes (Other)
  Sender: FDA-Public Use
  Company Number: VAL_02995_2014

PATIENT
  Age: 90 Year
  Sex: Male

DRUGS (1)
  1. CARBAMAZEPINE (CARBAMAZEPINE) [Suspect]
     Indication: PRODUCT USED FOR UNKNOWN INDICATION
     Dosage: (DF)

REACTIONS (1)
  - Lupus-like syndrome [None]
